FAERS Safety Report 11839918 (Version 1)
Quarter: 2015Q4

REPORT INFORMATION
  Report Type: Spontaneous
  Country: US (occurrence: None)
  Receive Date: 20151215
  Receipt Date: 20151215
  Transmission Date: 20160305
  Serious: Yes (Life-Threatening, Hospitalization)
  Sender: FDA-Public Use
  Company Number: None

PATIENT
  Age: 68 Year
  Sex: Male
  Weight: 95.26 kg

DRUGS (5)
  1. FLECAINIDE [Suspect]
     Active Substance: FLECAINIDE
     Indication: ATRIAL FIBRILLATION
     Route: 048
     Dates: start: 20151204, end: 20151205
  2. ELIQUIS [Concomitant]
     Active Substance: APIXABAN
  3. PROVOCHOLINE [Concomitant]
     Active Substance: METHACHOLINE CHLORIDE
  4. METOPROLOL [Concomitant]
     Active Substance: METOPROLOL
  5. ASPIRIN. [Concomitant]
     Active Substance: ASPIRIN

REACTIONS (5)
  - Atrial fibrillation [None]
  - Anxiety [None]
  - Product substitution issue [None]
  - Pulse abnormal [None]
  - Cerebrovascular accident [None]

NARRATIVE: CASE EVENT DATE: 20151206
